FAERS Safety Report 6971996-9 (Version None)
Quarter: 2010Q3

REPORT INFORMATION
  Report Type: 
  Country: None (occurrence: None)
  Receive Date: 20100908
  Receipt Date: 20100908
  Transmission Date: 20110219
  Serious: No
  Sender: FDA-Public Use
  Company Number: None

PATIENT
  Sex: Female
  Weight: 99.7913 kg

DRUGS (1)
  1. NIASPAN [Suspect]
     Dosage: 500 1 - DAILY

REACTIONS (7)
  - ABDOMINAL PAIN UPPER [None]
  - DIARRHOEA [None]
  - DYSPEPSIA [None]
  - HAEMORRHAGE [None]
  - HYPERHIDROSIS [None]
  - PRURITUS [None]
  - URTICARIA [None]
